FAERS Safety Report 5803432-X (Version None)
Quarter: 2008Q2

REPORT INFORMATION
  Report Type: 
  Country: None (occurrence: None)
  Receive Date: 20080627
  Receipt Date: 20080207
  Transmission Date: 20081010
  Serious: Yes (Other)
  Sender: FDA-Public Use
  Company Number: 45060

PATIENT
  Age: 41 Year
  Sex: Female
  Weight: 74.8435 kg

DRUGS (1)
  1. VECURONIUM BROMIDE [Suspect]
     Indication: PARALYSIS
     Dosage: 10MG IVP
     Dates: start: 20080117

REACTIONS (1)
  - DRUG INEFFECTIVE [None]
